FAERS Safety Report 10379021 (Version 2)
Quarter: 2014Q3

REPORT INFORMATION
  Report Type: Spontaneous
  Country: US (occurrence: US)
  Receive Date: 20140812
  Receipt Date: 20140812
  Transmission Date: 20150326
  Serious: Yes (Hospitalization, Other)
  Sender: FDA-Public Use
  Company Number: US-009507513-2009SP017698

PATIENT
  Sex: Female
  Weight: 83.92 kg

DRUGS (1)
  1. NUVARING [Suspect]
     Active Substance: ETHINYL ESTRADIOL\ETONOGESTREL
     Indication: CONTRACEPTION
     Dosage: 1 DF, UNK
     Route: 067
     Dates: start: 200606, end: 20070812

REACTIONS (9)
  - Pulmonary embolism [Recovered/Resolved]
  - Fatigue [Unknown]
  - Hypomenorrhoea [Unknown]
  - Gastritis [Unknown]
  - Migraine [Recovered/Resolved]
  - Hypercholesterolaemia [Recovered/Resolved]
  - Anxiety [Unknown]
  - Nausea [Recovering/Resolving]
  - Lipoma [Unknown]

NARRATIVE: CASE EVENT DATE: 200606
